FAERS Safety Report 19849944 (Version 1)
Quarter: 2021Q3

REPORT INFORMATION
  Report Type: Spontaneous
  Country: US (occurrence: US)
  Receive Date: 20210917
  Receipt Date: 20210917
  Transmission Date: 20211014
  Serious: No
  Sender: FDA-Public Use
  Company Number: US-ASTRAZENECA-2021A717021

PATIENT
  Sex: Female

DRUGS (3)
  1. TASIGNA [Concomitant]
     Active Substance: NILOTINIB
     Indication: CHEMOTHERAPY
     Route: 048
     Dates: start: 20190610
  2. PFIZER?BIONTECH COVID?19 VACCINE [Suspect]
     Active Substance: TOZINAMERAN
     Dates: start: 20210604
  3. FASENRA [Suspect]
     Active Substance: BENRALIZUMAB
     Indication: CHRONIC MYELOID LEUKAEMIA
     Route: 058
     Dates: start: 20210217

REACTIONS (6)
  - Pain in extremity [Unknown]
  - Arthralgia [Unknown]
  - Chest pain [Unknown]
  - Injection site pain [Unknown]
  - Hypokinesia [Unknown]
  - Neck pain [Unknown]
